FAERS Safety Report 5870429-3 (Version None)
Quarter: 2008Q3

REPORT INFORMATION
  Report Type: 
  Country: None (occurrence: None)
  Receive Date: 20080904
  Receipt Date: 20080522
  Transmission Date: 20090109
  Serious: No
  Sender: FDA-Public Use
  Company Number: US-BRISTOL-MYERS SQUIBB COMPANY-14201610

PATIENT
  Sex: Female

DRUGS (1)
  1. DEFINITY [Suspect]

REACTIONS (2)
  - PAIN [None]
  - PYREXIA [None]
